FAERS Safety Report 7641568-1 (Version None)
Quarter: 2011Q3

REPORT INFORMATION
  Report Type: 
  Country: None (occurrence: None)
  Receive Date: 20110728
  Receipt Date: 20110715
  Transmission Date: 20111222
  Serious: Yes (Hospitalization, Other)
  Sender: FDA-Public Use
  Company Number: US-ELI_LILLY_AND_COMPANY-US201004002951

PATIENT
  Sex: Female

DRUGS (9)
  1. FORTEO [Suspect]
     Indication: OSTEOPOROSIS
     Dosage: 20 UG, DAILY (1/D)
     Dates: start: 20100201
  2. AGGRENOX [Concomitant]
  3. ATENOLOL [Concomitant]
     Dosage: 25 MG, BID
  4. FORTEO [Suspect]
     Dosage: 20 UG, QD
  5. TRAMADOL HCL [Concomitant]
     Indication: ARTHRALGIA
  6. ZINC [Concomitant]
  7. FORTEO [Suspect]
     Dosage: 20 UG, QD
  8. LIPITOR [Concomitant]
     Indication: BLOOD CHOLESTEROL
     Dosage: 20 MG, UNK
  9. CALCIUM WITH VITAMIN D [Concomitant]

REACTIONS (9)
  - SKIN CANCER [None]
  - FALL [None]
  - HIP FRACTURE [None]
  - NEOPLASM MALIGNANT [None]
  - INJECTION SITE PAIN [None]
  - FEMORAL ARTERY OCCLUSION [None]
  - ILIAC ARTERY OCCLUSION [None]
  - GANGRENE [None]
  - BLOOD PRESSURE IMMEASURABLE [None]
